FAERS Safety Report 24950266 (Version 2)
Quarter: 2025Q1

REPORT INFORMATION
  Report Type: Spontaneous
  Country: US (occurrence: US)
  Receive Date: 20250210
  Receipt Date: 20250226
  Transmission Date: 20250409
  Serious: Yes (Other)
  Sender: ADVANTICE HEALTH
  Company Number: US-ADVANTICEHEALTH-2025-US-004955

PATIENT
  Age: 46 Year
  Sex: Female
  Weight: 86.18 kg

DRUGS (3)
  1. BENZETHONIUM CHLORIDE [Suspect]
     Active Substance: BENZETHONIUM CHLORIDE
     Indication: Skin laceration
     Route: 061
     Dates: start: 20250108, end: 20250108
  2. UNSPECIFIED INGREDIENT [Concomitant]
     Active Substance: UNSPECIFIED INGREDIENT
  3. UNSPECIFIED INGREDIENT [Concomitant]
     Active Substance: UNSPECIFIED INGREDIENT

REACTIONS (6)
  - Application site irritation [Not Recovered/Not Resolved]
  - Application site erythema [Not Recovered/Not Resolved]
  - Application site pain [Not Recovered/Not Resolved]
  - Swelling [Not Recovered/Not Resolved]
  - Feeling abnormal [Not Recovered/Not Resolved]
  - Abscess [Unknown]

NARRATIVE: CASE EVENT DATE: 20250108
